FAERS Safety Report 11068898 (Version 1)
Quarter: 2015Q2

REPORT INFORMATION
  Report Type: Spontaneous
  Country: IT (occurrence: IT)
  Receive Date: 20150427
  Receipt Date: 20150427
  Transmission Date: 20150821
  Serious: Yes (Hospitalization)
  Sender: FDA-Public Use
  Company Number: IT-BIOGENIDEC-2015BI043859

PATIENT
  Age: 50 Year
  Sex: Female

DRUGS (14)
  1. COAPROVEL [Concomitant]
     Active Substance: HYDROCHLOROTHIAZIDE\IRBESARTAN
  2. TARGIN [Concomitant]
     Active Substance: NALOXONE HYDROCHLORIDE\OXYCODONE HYDROCHLORIDE
  3. LANGAST (NOS) [Concomitant]
  4. ABILIFY [Concomitant]
     Active Substance: ARIPIPRAZOLE
     Indication: MOOD ALTERED
     Route: 048
  5. GABAPENTIN. [Concomitant]
     Active Substance: GABAPENTIN
     Indication: NEURALGIA
  6. ABILIFY [Concomitant]
     Active Substance: ARIPIPRAZOLE
     Indication: MOOD ALTERED
     Route: 048
     Dates: start: 20150314, end: 20150324
  7. EUTIROX [Concomitant]
     Active Substance: LEVOTHYROXINE SODIUM
  8. GABAPENTIN. [Concomitant]
     Active Substance: GABAPENTIN
     Indication: NEURALGIA
  9. GABAPENTIN. [Concomitant]
     Active Substance: GABAPENTIN
     Indication: NEURALGIA
  10. FOLINA [Concomitant]
     Active Substance: FOLIC ACID
  11. TECFIDERA [Suspect]
     Active Substance: DIMETHYL FUMARATE
     Indication: MULTIPLE SCLEROSIS
     Route: 048
     Dates: start: 20140228, end: 20140307
  12. LUMINAL [Concomitant]
     Active Substance: PHENOBARBITAL SODIUM
  13. TECFIDERA [Suspect]
     Active Substance: DIMETHYL FUMARATE
     Indication: MULTIPLE SCLEROSIS
     Route: 048
     Dates: start: 20140308, end: 20150327
  14. GLUCOPHAGE [Concomitant]
     Active Substance: METFORMIN HYDROCHLORIDE

REACTIONS (27)
  - Constipation [Not Recovered/Not Resolved]
  - Decreased appetite [Unknown]
  - Thrombocytosis [Unknown]
  - Gamma-glutamyltransferase increased [Unknown]
  - Alanine aminotransferase increased [Recovered/Resolved]
  - Infection parasitic [Unknown]
  - Eosinophilia [Recovered/Resolved]
  - General physical health deterioration [Unknown]
  - Asthenia [Unknown]
  - Transaminases increased [Unknown]
  - Aspartate aminotransferase increased [Not Recovered/Not Resolved]
  - Urinary tract infection [Unknown]
  - Feeding disorder [Unknown]
  - General symptom [Unknown]
  - Spinal cord injury [Unknown]
  - Blood lactate dehydrogenase increased [Unknown]
  - Retching [Not Recovered/Not Resolved]
  - Hepatitis infectious [Unknown]
  - Fluid intake reduced [Unknown]
  - Autoimmune hepatitis [Unknown]
  - Blood calcium decreased [Unknown]
  - Nausea [Not Recovered/Not Resolved]
  - Multiple sclerosis relapse [Not Recovered/Not Resolved]
  - Leukocytosis [Unknown]
  - Blood potassium decreased [Unknown]
  - Antinuclear antibody positive [Unknown]
  - Drug-induced liver injury [Unknown]

NARRATIVE: CASE EVENT DATE: 20140228
